FAERS Safety Report 8806126 (Version 1)
Quarter: 2012Q4

REPORT INFORMATION
  Report Type: Spontaneous
  Country: US (occurrence: None)
  Receive Date: 20120917
  Receipt Date: 20120917
  Transmission Date: 20130627
  Serious: Yes (Life-Threatening, Other)
  Sender: FDA-Public Use
  Company Number: 2012-01333

PATIENT
  Age: 31 Year
  Sex: Male

DRUGS (3)
  1. TRAMADOL [Suspect]
  2. DULOXETINE [Concomitant]
  3. RISPERIDONE [Concomitant]

REACTIONS (6)
  - Suicide attempt [None]
  - Intentional overdose [None]
  - Tonic convulsion [None]
  - Drug screen false positive [None]
  - Blood pressure increased [None]
  - Tachycardia [None]
